FAERS Safety Report 23618867 (Version 2)
Quarter: 2024Q1

REPORT INFORMATION
  Report Type: Report from Study
  Country: CA (occurrence: CA)
  Receive Date: 20240311
  Receipt Date: 20240328
  Transmission Date: 20240410
  Serious: Yes (Hospitalization, Other)
  Sender: FDA-Public Use
  Company Number: CA-FreseniusKabi-FK202403649

PATIENT
  Age: 47 Year
  Sex: Male

DRUGS (1)
  1. IDACIO [Suspect]
     Active Substance: ADALIMUMAB-AACF
     Indication: Ankylosing spondylitis
     Route: 058

REACTIONS (1)
  - Anaphylactic reaction [Unknown]

NARRATIVE: CASE EVENT DATE: 20240101
